FAERS Safety Report 12809640 (Version 1)
Quarter: 2016Q4

REPORT INFORMATION
  Report Type: Report from Study
  Country: US (occurrence: US)
  Receive Date: 20161005
  Receipt Date: 20161005
  Transmission Date: 20170207
  Serious: Yes (Other)
  Sender: FDA-Public Use
  Company Number: US-ROCHE-1835361

PATIENT
  Age: 58 Year
  Sex: Female
  Weight: 124.4 kg

DRUGS (12)
  1. BEVACIZUMAB [Suspect]
     Active Substance: BEVACIZUMAB
     Dosage: COURSE 13, NO DOSE CHANGE
     Route: 042
     Dates: start: 20110912
  2. BEVACIZUMAB [Suspect]
     Active Substance: BEVACIZUMAB
     Dosage: COURSE 2, NO DOSE CHANGE
     Route: 042
     Dates: start: 20110124
  3. PACLITAXEL. [Suspect]
     Active Substance: PACLITAXEL
     Indication: ENDOMETRIAL CANCER
     Route: 042
  4. BEVACIZUMAB [Suspect]
     Active Substance: BEVACIZUMAB
     Dosage: COURSE 6, UNPLANNED DOSE CHANGE
     Route: 042
     Dates: start: 20110418
  5. BEVACIZUMAB [Suspect]
     Active Substance: BEVACIZUMAB
     Dosage: COURSE 12, NO DOSE CHANGE
     Route: 042
     Dates: start: 20110822
  6. CARBOPLATIN. [Suspect]
     Active Substance: CARBOPLATIN
     Indication: ENDOMETRIAL CANCER
     Route: 042
  7. BEVACIZUMAB [Suspect]
     Active Substance: BEVACIZUMAB
     Dosage: COURSE 5, UNPLANNED DOSE CHANGE
     Route: 042
     Dates: start: 20110328
  8. BEVACIZUMAB [Suspect]
     Active Substance: BEVACIZUMAB
     Dosage: COURSE 9, NO DOSE CHANGE
     Route: 042
     Dates: start: 20110620
  9. BEVACIZUMAB [Suspect]
     Active Substance: BEVACIZUMAB
     Dosage: COURSE 4, NO DOSE CHANGE
     Route: 042
     Dates: start: 20110307
  10. BEVACIZUMAB [Suspect]
     Active Substance: BEVACIZUMAB
     Dosage: COURSE 11, NO DOSE CHANGE
     Route: 042
     Dates: start: 20110801
  11. BEVACIZUMAB [Suspect]
     Active Substance: BEVACIZUMAB
     Indication: ENDOMETRIAL CANCER
     Dosage: COURSE 1, NO DOSE CHANGE
     Route: 042
     Dates: start: 20110103
  12. BEVACIZUMAB [Suspect]
     Active Substance: BEVACIZUMAB
     Dosage: COURSE 3, NO DOSE CHANGE
     Route: 042
     Dates: start: 20110214

REACTIONS (2)
  - Vascular access complication [Unknown]
  - Anaphylactic reaction [Unknown]
